FAERS Safety Report 5138419-6 (Version None)
Quarter: 2006Q4

REPORT INFORMATION
  Report Type: 
  Country: None (occurrence: None)
  Receive Date: 20061030
  Receipt Date: 20060221
  Transmission Date: 20070319
  Serious: No
  Sender: FDA-Public Use
  Company Number: US-GLAXOSMITHKLINE-A0594635A

PATIENT
  Age: 91 Year
  Sex: Male

DRUGS (4)
  1. ADVAIR DISKUS 250/50 [Suspect]
     Indication: DRUG USE FOR UNKNOWN INDICATION
     Route: 055
     Dates: start: 20050301
  2. SPIRIVA [Concomitant]
  3. ALBUTEROL [Concomitant]
  4. NAMENDA [Concomitant]

REACTIONS (1)
  - ACCIDENTAL OVERDOSE [None]
